FAERS Safety Report 19303972 (Version 1)
Quarter: 2021Q2

REPORT INFORMATION
  Report Type: Report from Study
  Country: MX (occurrence: MX)
  Receive Date: 20210525
  Receipt Date: 20210525
  Transmission Date: 20210717
  Serious: Yes (Death, Other)
  Sender: FDA-Public Use
  Company Number: MX-SEATTLE GENETICS-2021SGN00266

PATIENT
  Sex: Female

DRUGS (1)
  1. BRENTUXIMAB VEDOTIN [Suspect]
     Active Substance: BRENTUXIMAB VEDOTIN
     Indication: HODGKIN^S DISEASE
     Dosage: 120 MILLIGRAM
     Route: 042
     Dates: start: 20201204, end: 20210427

REACTIONS (4)
  - Neuropathy peripheral [Unknown]
  - Gastritis [Unknown]
  - Skin discolouration [Unknown]
  - Hodgkin^s disease [Fatal]
